FAERS Safety Report 8576297-3 (Version None)
Quarter: 2012Q3

REPORT INFORMATION
  Report Type: 
  Country: None (occurrence: None)
  Receive Date: 20120724
  Receipt Date: 20120713
  Transmission Date: 20120928
  Serious: Yes (Other)
  Sender: FDA-Public Use
  Company Number: AUR-APL-2012-03112

PATIENT
  Age: 47 Year
  Sex: Female

DRUGS (6)
  1. MIRTAZAPINE [Suspect]
     Indication: PRODUCT USED FOR UNKNOWN INDICATION
     Dosage: 15 MG (15 MG, 1IN 1 D),ORAL, 30 MG (30 MG, 1 IN 1 D),ORAL
     Route: 048
     Dates: start: 20120412, end: 20120416
  2. MIRTAZAPINE [Suspect]
     Indication: PRODUCT USED FOR UNKNOWN INDICATION
     Dosage: 15 MG (15 MG, 1IN 1 D),ORAL, 30 MG (30 MG, 1 IN 1 D),ORAL
     Route: 048
     Dates: start: 20120403, end: 20120411
  3. MIRTAZAPINE [Suspect]
     Indication: PRODUCT USED FOR UNKNOWN INDICATION
     Dosage: 15 MG (15 MG, 1IN 1 D),ORAL, 30 MG (30 MG, 1 IN 1 D),ORAL
     Route: 048
     Dates: start: 20120330, end: 20120402
  4. SEROQUEL [Suspect]
     Indication: PRODUCT USED FOR UNKNOWN INDICATION
     Dosage: SEE IMAGE
     Route: 048
     Dates: start: 20120329, end: 20120329
  5. PANTOPRAZOLE SODIUM [Concomitant]
  6. SEROQUEL [Concomitant]

REACTIONS (4)
  - INSOMNIA [None]
  - RESTLESS LEGS SYNDROME [None]
  - PARAESTHESIA [None]
  - DRUG INTERACTION [None]
